FAERS Safety Report 21952458 (Version 2)
Quarter: 2024Q1

REPORT INFORMATION
  Report Type: Spontaneous
  Country: US (occurrence: US)
  Receive Date: 20230203
  Receipt Date: 20240325
  Transmission Date: 20240410
  Serious: No
  Sender: FDA-Public Use
  Company Number: US-INCYTE CORPORATION-2023IN000854

PATIENT

DRUGS (2)
  1. JAKAFI [Suspect]
     Active Substance: RUXOLITINIB
     Indication: Myeloproliferative neoplasm
     Dosage: 10 MILLIGRAM, BID
     Route: 048
     Dates: start: 20210922
  2. JAKAFI [Suspect]
     Active Substance: RUXOLITINIB
     Dosage: 100 MILLIGRAM, BID
     Route: 048
     Dates: start: 20210922

REACTIONS (13)
  - Oropharyngeal discomfort [Unknown]
  - Gastrooesophageal reflux disease [Unknown]
  - Hypersensitivity [Unknown]
  - Weight increased [Unknown]
  - Pharyngeal erythema [Unknown]
  - Throat irritation [Unknown]
  - Off label use [Unknown]
  - Renal disorder [Unknown]
  - Decreased activity [Unknown]
  - Pain [Unknown]
  - General physical condition abnormal [Unknown]
  - Emotional disorder [Unknown]
  - Arthritis [Unknown]

NARRATIVE: CASE EVENT DATE: 20210922
